FAERS Safety Report 24257852 (Version 2)
Quarter: 2024Q4

REPORT INFORMATION
  Report Type: Report from Study
  Country: CO (occurrence: CO)
  Receive Date: 20240828
  Receipt Date: 20241224
  Transmission Date: 20250115
  Serious: Yes (Other)
  Sender: REGENERON
  Company Number: CO-BAYER-2024A122581

PATIENT
  Age: 84 Year
  Sex: Female

DRUGS (1)
  1. EYLEA [Suspect]
     Active Substance: AFLIBERCEPT
     Indication: Retinal vein occlusion
     Dosage: VIAL 40 MG/ML AFLIBERCEPT 2MG; SOLUTION FOR INJECTION; 40 MG/ML
     Dates: start: 20231020, end: 20240214

REACTIONS (1)
  - Eye operation [Recovered/Resolved with Sequelae]

NARRATIVE: CASE EVENT DATE: 20240425
